FAERS Safety Report 22168220 (Version 1)
Quarter: 2023Q2

REPORT INFORMATION
  Report Type: Spontaneous
  Country: US (occurrence: US)
  Receive Date: 20230403
  Receipt Date: 20230403
  Transmission Date: 20230721
  Serious: No
  Sender: FDA-Public Use
  Company Number: US-PFIZER INC-PV202300059330

PATIENT
  Age: 82 Year
  Sex: Male
  Weight: 99.9 kg

DRUGS (2)
  1. ACETYLCYSTEINE [Suspect]
     Active Substance: ACETYLCYSTEINE
     Dosage: 600MG OF THE PRODUCT IN 500ML OF DEXTROSE 5% IN WATER
     Route: 042
  2. DEXTROSE\WATER [Concomitant]
     Active Substance: DEXTROSE\WATER
     Dosage: 500 ML

REACTIONS (4)
  - Activated partial thromboplastin time prolonged [Unknown]
  - Full blood count abnormal [Unknown]
  - Incorrect route of product administration [Unknown]
  - Product dispensing error [Unknown]
